FAERS Safety Report 15851592 (Version 1)
Quarter: 2019Q1

REPORT INFORMATION
  Report Type: Spontaneous
  Country: ES (occurrence: ES)
  Receive Date: 20190122
  Receipt Date: 20190122
  Transmission Date: 20190417
  Serious: Yes (Other)
  Sender: FDA-Public Use
  Company Number: ES-ALK-ABELLO A/S-2018AA004704

PATIENT
  Age: 42 Year
  Sex: Male

DRUGS (1)
  1. HONEY BEE VENOM [Suspect]
     Active Substance: APIS MELLIFERA VENOM
     Indication: PRODUCT USED FOR UNKNOWN INDICATION
     Dosage: 100 MICROGRAM

REACTIONS (6)
  - Pruritus [Unknown]
  - Oxygen saturation decreased [Unknown]
  - Dyspnoea [Unknown]
  - Erythema [Unknown]
  - Conjunctivitis [Unknown]
  - Hypotension [Unknown]

NARRATIVE: CASE EVENT DATE: 20111215
